FAERS Safety Report 4647425-7 (Version None)
Quarter: 2005Q2

REPORT INFORMATION
  Report Type: 
  Country: None (occurrence: None)
  Receive Date: 20050428
  Receipt Date: 20050420
  Transmission Date: 20051028
  Serious: Yes (Death, Hospitalization)
  Sender: FDA-Public Use
  Company Number: JP-BRISTOL-MYERS SQUIBB COMPANY-12947800

PATIENT
  Age: 46 Year
  Sex: Male

DRUGS (3)
  1. RESLIN [Suspect]
     Route: 048
     Dates: start: 20050121, end: 20050131
  2. ROHYPNOL [Concomitant]
  3. EVAMYL [Concomitant]

REACTIONS (2)
  - LEUKOPENIA [None]
  - PNEUMONIA [None]
